FAERS Safety Report 15455839 (Version 2)
Quarter: 2018Q4

REPORT INFORMATION
  Report Type: Spontaneous
  Country: DE (occurrence: DE)
  Receive Date: 20181002
  Receipt Date: 20181024
  Transmission Date: 20190204
  Serious: Yes (Life-Threatening, Hospitalization)
  Sender: FDA-Public Use
  Company Number: PHHY2018DE097777

PATIENT
  Sex: Female

DRUGS (1)
  1. FLUORESCEIN SODIUM. [Suspect]
     Active Substance: FLUORESCEIN SODIUM
     Indication: ANGIOGRAM RETINA
     Route: 042

REACTIONS (5)
  - Drug intolerance [Unknown]
  - Cardiovascular disorder [Unknown]
  - Nausea [Unknown]
  - Product quality issue [Unknown]
  - Cold sweat [Unknown]

NARRATIVE: CASE EVENT DATE: 2018
